FAERS Safety Report 5370560-5 (Version None)
Quarter: 2007Q2

REPORT INFORMATION
  Report Type: 
  Country: None (occurrence: None)
  Receive Date: 20070626
  Receipt Date: 20070615
  Transmission Date: 20071010
  Serious: Yes (Hospitalization)
  Sender: FDA-Public Use
  Company Number: PHBS2007SE10280

PATIENT
  Age: 81 Year
  Sex: Male

DRUGS (6)
  1. HYDREA [Concomitant]
     Indication: CHRONIC MYELOID LEUKAEMIA
     Route: 065
  2. FURIX [Concomitant]
     Route: 065
  3. KALCIDON [Concomitant]
     Route: 065
  4. GLEEVEC [Suspect]
     Indication: CHRONIC MYELOID LEUKAEMIA
     Dosage: 400 MG/D
     Route: 048
     Dates: start: 20060101
  5. GLEEVEC [Suspect]
     Dosage: 800 MG/D
  6. GLEEVEC [Suspect]
     Dosage: UNK, UNK
     Route: 048
     Dates: start: 20040101

REACTIONS (9)
  - AMYLOIDOSIS [None]
  - ARTERIOSCLEROSIS [None]
  - BENCE JONES PROTEINURIA [None]
  - BLOOD CREATININE INCREASED [None]
  - BLOOD URIC ACID INCREASED [None]
  - DIALYSIS [None]
  - HAEMOGLOBIN DECREASED [None]
  - NEPHROPATHY [None]
  - RENAL FAILURE [None]
